FAERS Safety Report 10020612 (Version 1)
Quarter: 2014Q1

REPORT INFORMATION
  Report Type: Spontaneous
  Country: AR (occurrence: AR)
  Receive Date: 20140319
  Receipt Date: 20140319
  Transmission Date: 20141002
  Serious: Yes (Other)
  Sender: FDA-Public Use
  Company Number: CHPA2014AR003704

PATIENT
  Sex: Male

DRUGS (1)
  1. NICOTINELL GUM [Suspect]

REACTIONS (1)
  - Drug dependence [Unknown]
